FAERS Safety Report 25777093 (Version 3)
Quarter: 2025Q4

REPORT INFORMATION
  Report Type: Spontaneous
  Country: BR (occurrence: BR)
  Receive Date: 20250909
  Receipt Date: 20251027
  Transmission Date: 20260118
  Serious: No
  Sender: NOVARTIS
  Company Number: BR-002147023-NVSC2025BR136648

PATIENT
  Age: 62 Year
  Sex: Female
  Weight: 60 kg

DRUGS (6)
  1. KISQALI [Suspect]
     Active Substance: RIBOCICLIB SUCCINATE
     Indication: Breast cancer
     Dosage: UNK (3 TABLETS -7-DAY BREAK)
     Route: 048
     Dates: start: 202405
  2. KISQALI [Suspect]
     Active Substance: RIBOCICLIB SUCCINATE
     Dosage: 600 MG, QD (1-21 EVERY 28 DAYS)
     Route: 065
     Dates: start: 202406
  3. KISQALI [Suspect]
     Active Substance: RIBOCICLIB SUCCINATE
     Dosage: 200 MG (63 FILM COATED TABLETS)
     Route: 048
  4. LETROZOLE [Suspect]
     Active Substance: LETROZOLE
     Indication: Product used for unknown indication
     Dosage: 2.5 MG, QD
     Route: 048
     Dates: start: 202406
  5. ZOMETA [Suspect]
     Active Substance: ZOLEDRONIC ACID
     Indication: Product used for unknown indication
     Dosage: 4 MG
     Route: 042
  6. FUROSEMIDE [Concomitant]
     Active Substance: FUROSEMIDE
     Indication: Polyuria
     Dosage: UNK
     Route: 048
     Dates: start: 202504, end: 202505

REACTIONS (3)
  - Anxiety [Recovering/Resolving]
  - Drug ineffective [Unknown]
  - Blood potassium increased [Recovered/Resolved]

NARRATIVE: CASE EVENT DATE: 20240601
